FAERS Safety Report 11033668 (Version 1)
Quarter: 2015Q2

REPORT INFORMATION
  Report Type: Spontaneous
  Country: US (occurrence: US)
  Receive Date: 20150415
  Receipt Date: 20150415
  Transmission Date: 20150821
  Serious: Yes (Hospitalization, Other)
  Sender: FDA-Public Use
  Company Number: US-ABBVIE-15P-163-1375495-00

PATIENT
  Sex: Female

DRUGS (1)
  1. SYNTHROID [Suspect]
     Active Substance: LEVOTHYROXINE SODIUM
     Indication: HYPOTHYROIDISM
     Route: 065

REACTIONS (39)
  - Migraine [Unknown]
  - Compartment syndrome [Unknown]
  - Infection [Unknown]
  - Influenza like illness [Unknown]
  - Musculoskeletal stiffness [Unknown]
  - Stress [Unknown]
  - Gallbladder pain [Recovered/Resolved]
  - Hypoaesthesia [Unknown]
  - Peripheral swelling [Not Recovered/Not Resolved]
  - Oesophageal spasm [Unknown]
  - Memory impairment [Unknown]
  - Impaired healing [Unknown]
  - Methylenetetrahydrofolate reductase gene mutation [Unknown]
  - Malaise [Unknown]
  - Sensory disturbance [Unknown]
  - Condition aggravated [Unknown]
  - Factor V Leiden mutation [Unknown]
  - Pulmonary embolism [Unknown]
  - Anxiety [Unknown]
  - Gastrointestinal disorder [Unknown]
  - Cat scratch disease [Unknown]
  - Babesiosis [Unknown]
  - Toxicity to various agents [Unknown]
  - Arthralgia [Unknown]
  - Rash [Unknown]
  - Feeling abnormal [Unknown]
  - Blood viscosity increased [Unknown]
  - Vomiting [Unknown]
  - Night sweats [Unknown]
  - Depression [Unknown]
  - Fatigue [Unknown]
  - Nodule [Unknown]
  - Bedridden [Unknown]
  - Fear [Unknown]
  - Palpitations [Unknown]
  - Somnolence [Unknown]
  - Rash pruritic [Unknown]
  - Lyme disease [Unknown]
  - Folate deficiency [Unknown]
